FAERS Safety Report 18198036 (Version 1)
Quarter: 2020Q3

REPORT INFORMATION
  Report Type: Spontaneous
  Country: US (occurrence: US)
  Receive Date: 20200826
  Receipt Date: 20200826
  Transmission Date: 20201103
  Serious: Yes (Other)
  Sender: FDA-Public Use
  Company Number: US-SLATE RUN PHARMACEUTICALS-20US000265

PATIENT

DRUGS (9)
  1. HEPARIN [Concomitant]
     Active Substance: HEPARIN SODIUM
     Indication: RESPIRATORY FAILURE
     Route: 042
  2. BETAMETHASONE. [Concomitant]
     Active Substance: BETAMETHASONE
     Indication: MATERNAL THERAPY TO ENHANCE FOETAL LUNG MATURITY
     Dosage: 1 DOSAGE FORM
     Route: 065
  3. MAGNESIUM SULFATE. [Concomitant]
     Active Substance: MAGNESIUM SULFATE
     Indication: PROPHYLAXIS
     Route: 065
  4. AZITHROMYCIN USP [Suspect]
     Active Substance: AZITHROMYCIN
     Indication: COVID-19 PNEUMONIA
     Route: 065
  5. PLASMA [Concomitant]
     Active Substance: HUMAN PLASMA
     Indication: RESPIRATORY FAILURE
     Route: 065
  6. TOCILIZUMAB. [Concomitant]
     Active Substance: TOCILIZUMAB
     Indication: RESPIRATORY FAILURE
     Route: 065
  7. HYDROXYCHLOROQUINE [Concomitant]
     Active Substance: HYDROXYCHLOROQUINE
     Indication: COVID-19 PNEUMONIA
     Route: 065
  8. REMDESIVIR. [Concomitant]
     Active Substance: REMDESIVIR
     Indication: RESPIRATORY FAILURE
     Route: 065
  9. NITRIC OXIDE. [Concomitant]
     Active Substance: NITRIC OXIDE
     Indication: RESPIRATORY FAILURE

REACTIONS (7)
  - Suppressed lactation [Unknown]
  - Maternal exposure during pregnancy [Unknown]
  - Amniotic cavity infection [Unknown]
  - Premature separation of placenta [Unknown]
  - Pre-eclampsia [Unknown]
  - Small size placenta [Unknown]
  - Off label use [Unknown]
